FAERS Safety Report 9068927 (Version 1)
Quarter: 2013Q1

REPORT INFORMATION
  Report Type: Spontaneous
  Country: US (occurrence: None)
  Receive Date: 20130213
  Receipt Date: 20130213
  Transmission Date: 20140127
  Serious: Yes (Other)
  Sender: FDA-Public Use
  Company Number: None

PATIENT
  Age: 77 Year
  Sex: Female
  Weight: 56.7 kg

DRUGS (2)
  1. NIFEDIAC CC, 90MG, TEVA ISA [Suspect]
     Indication: BLOOD PRESSURE INCREASED
     Route: 048
  2. ENABLEX [Suspect]
     Indication: HYPERTONIC BLADDER
     Route: 048

REACTIONS (1)
  - Blood pressure increased [None]
